FAERS Safety Report 15908033 (Version 1)
Quarter: 2019Q1

REPORT INFORMATION
  Report Type: Spontaneous
  Country: US (occurrence: US)
  Receive Date: 20190204
  Receipt Date: 20190204
  Transmission Date: 20190417
  Serious: Yes (Hospitalization, Other)
  Sender: FDA-Public Use
  Company Number: US-PFIZER INC-2019046664

PATIENT
  Age: 62 Year
  Sex: Male

DRUGS (1)
  1. XELJANZ [Suspect]
     Active Substance: TOFACITINIB CITRATE
     Dosage: 10 MG, TWICE A DAY
     Route: 048

REACTIONS (6)
  - Bronchitis [Unknown]
  - Dermatitis acneiform [Unknown]
  - Rash pustular [Unknown]
  - Fatigue [Unknown]
  - Sleep disorder [Unknown]
  - Immunosuppression [Unknown]

NARRATIVE: CASE EVENT DATE: 201901
